FAERS Safety Report 11919702 (Version 1)
Quarter: 2016Q1

REPORT INFORMATION
  Report Type: Spontaneous
  Country: US (occurrence: None)
  Receive Date: 20160114
  Receipt Date: 20160114
  Transmission Date: 20160526
  Serious: No
  Sender: FDA-Public Use
  Company Number: None

PATIENT
  Age: 32 Year
  Sex: Female
  Weight: 83.01 kg

DRUGS (4)
  1. COPPER IUD [Concomitant]
     Active Substance: COPPER\INTRAUTERINE DEVICE
  2. VITAMIN C [Concomitant]
     Active Substance: ASCORBIC ACID
  3. FISH OIL [Concomitant]
     Active Substance: FISH OIL
  4. PENICILLIN VK 500 MG CITRON PHA [Suspect]
     Active Substance: PENICILLIN V POTASSIUM
     Indication: PHARYNGITIS STREPTOCOCCAL
     Route: 048
     Dates: start: 20160109, end: 20160112

REACTIONS (3)
  - Palpitations [None]
  - Dysgeusia [None]
  - Abdominal discomfort [None]

NARRATIVE: CASE EVENT DATE: 20160112
